FAERS Safety Report 4893820-0 (Version None)
Quarter: 2005Q4

REPORT INFORMATION
  Report Type: 
  Country: None (occurrence: None)
  Receive Date: 20051223
  Receipt Date: 20051123
  Transmission Date: 20060501
  Serious: No
  Sender: FDA-Public Use
  Company Number: 2005PV004835

PATIENT
  Age: 42 Year
  Sex: Male

DRUGS (6)
  1. SYMLIN [Suspect]
     Indication: DIABETES MELLITUS NON-INSULIN-DEPENDENT
     Dosage: 120 MCG; TID; SC
     Route: 058
     Dates: start: 20051001, end: 20051101
  2. GLUCOPHAGE [Concomitant]
  3. HUMALOG [Concomitant]
  4. LANTUS [Concomitant]
  5. AVAPRO [Concomitant]
  6. NORVASC [Concomitant]

REACTIONS (2)
  - CHEST PAIN [None]
  - NAUSEA [None]
